FAERS Safety Report 16886215 (Version 1)
Quarter: 2019Q4

REPORT INFORMATION
  Report Type: Spontaneous
  Country: US (occurrence: US)
  Receive Date: 20191004
  Receipt Date: 20191004
  Transmission Date: 20200122
  Serious: No
  Sender: FDA-Public Use
  Company Number: None

PATIENT
  Age: 68 Year
  Sex: Female
  Weight: 87.75 kg

DRUGS (15)
  1. HYDROCODONE BITARTRATE AND ACETAMINOPHEN [Concomitant]
     Active Substance: ACETAMINOPHEN\HYDROCODONE BITARTRATE
  2. OMEPRAZOLE. [Concomitant]
     Active Substance: OMEPRAZOLE
  3. VITAMIN D3 ADULT GUMMIES [Concomitant]
  4. LEVOTHYROXINE. [Concomitant]
     Active Substance: LEVOTHYROXINE
  5. LIOTHYRONINE SODIUM. [Concomitant]
     Active Substance: LIOTHYRONINE SODIUM
  6. LETROZOLE. [Concomitant]
     Active Substance: LETROZOLE
  7. XGEVA [Concomitant]
     Active Substance: DENOSUMAB
  8. CALCIUM 600 [Concomitant]
     Active Substance: CALCIUM
  9. BACLOFEN. [Concomitant]
     Active Substance: BACLOFEN
  10. PHENTERMINE HCL [Concomitant]
     Active Substance: PHENTERMINE HYDROCHLORIDE
  11. IBRANCE [Suspect]
     Active Substance: PALBOCICLIB
     Indication: BREAST CANCER FEMALE
     Route: 048
  12. ASPIRIN. [Concomitant]
     Active Substance: ASPIRIN
  13. FISH OIL OMEGA-3 [Concomitant]
  14. FLUTICASONE PROPIONATE. [Concomitant]
     Active Substance: FLUTICASONE PROPIONATE
  15. XANAX [Concomitant]
     Active Substance: ALPRAZOLAM

REACTIONS (4)
  - Contusion [None]
  - Stomatitis [None]
  - Arthralgia [None]
  - Petechiae [None]
